FAERS Safety Report 4492627-6 (Version None)
Quarter: 2004Q4

REPORT INFORMATION
  Report Type: 
  Country: None (occurrence: None)
  Receive Date: 20041103
  Receipt Date: 20041008
  Transmission Date: 20050328
  Serious: Yes (Death)
  Sender: FDA-Public Use
  Company Number: 20041000453

PATIENT
  Age: 67 Year
  Sex: Female

DRUGS (1)
  1. MORPHINE SULFATE (PREFILLED SYRINGE, 1 MG/ML, 50 ML) [Suspect]
     Indication: PAIN
     Dates: start: 20041003, end: 20041007

REACTIONS (4)
  - BLOOD PRESSURE DECREASED [None]
  - COMA [None]
  - DEVICE FAILURE [None]
  - RESPIRATORY RATE DECREASED [None]
